FAERS Safety Report 18861391 (Version 2)
Quarter: 2021Q1

REPORT INFORMATION
  Report Type: Spontaneous
  Country: TW (occurrence: TW)
  Receive Date: 20210208
  Receipt Date: 20210312
  Transmission Date: 20210420
  Serious: Yes (Other)
  Sender: FDA-Public Use
  Company Number: NVSC2021TW027288

PATIENT

DRUGS (2)
  1. SECUKINUMAB. [Suspect]
     Active Substance: SECUKINUMAB
     Dosage: FOLLOWED BY MONTHLY 300 MG BEGINNING AT WEEK 8
     Route: 058
  2. SECUKINUMAB. [Suspect]
     Active Substance: SECUKINUMAB
     Indication: PSORIASIS
     Dosage: 300 MG, INITIAL DOSE AT WEEKS 0,1,2, 3, AND 4
     Route: 058

REACTIONS (1)
  - Rectal cancer [Unknown]
